FAERS Safety Report 7802479-1 (Version None)
Quarter: 2011Q4

REPORT INFORMATION
  Report Type: 
  Country: None (occurrence: None)
  Receive Date: 20111007
  Receipt Date: 20110929
  Transmission Date: 20120403
  Serious: Yes (Other)
  Sender: FDA-Public Use
  Company Number: JP-GLAXOSMITHKLINE-B0639343A

PATIENT
  Sex: Male
  Weight: 96 kg

DRUGS (7)
  1. OLOPATADINE HCL [Concomitant]
     Indication: RHINITIS ALLERGIC
     Dosage: 10MG PER DAY
     Route: 048
  2. FLOLAN [Suspect]
     Indication: PULMONARY ARTERIAL HYPERTENSION
     Route: 042
     Dates: start: 19960101
  3. ALLOPURINOL [Concomitant]
     Indication: HYPERURICAEMIA
     Dosage: 100MG PER DAY
     Route: 048
  4. TORSEMIDE [Concomitant]
     Indication: RIGHT VENTRICULAR FAILURE
     Dosage: 8MG PER DAY
     Route: 048
  5. ETHYL ICOSAPENTATE [Concomitant]
     Indication: DYSLIPIDAEMIA
     Dosage: 1800MG PER DAY
     Route: 048
     Dates: start: 20100107
  6. LISINOPRIL [Concomitant]
     Indication: RIGHT VENTRICULAR FAILURE
     Dosage: 10MG PER DAY
     Route: 048
  7. RABEPRAZOLE SODIUM [Concomitant]
     Indication: GASTROOESOPHAGEAL REFLUX DISEASE
     Dosage: 10MG PER DAY
     Route: 048
     Dates: start: 20090702

REACTIONS (2)
  - WHITE BLOOD CELL COUNT INCREASED [None]
  - HAEMATOCRIT INCREASED [None]
